FAERS Safety Report 24430666 (Version 1)
Quarter: 2024Q4

REPORT INFORMATION
  Report Type: Report from Study
  Country: DE (occurrence: DE)
  Receive Date: 20241013
  Receipt Date: 20241013
  Transmission Date: 20250114
  Serious: Yes (Hospitalization)
  Sender: ABBVIE
  Company Number: DE-ABBVIE-5954564

PATIENT
  Sex: Male

DRUGS (4)
  1. CARBIDOPA\LEVODOPA [Suspect]
     Active Substance: CARBIDOPA\LEVODOPA
     Indication: Parkinson^s disease
     Dosage: 20/5 MG/ML
     Route: 050
     Dates: start: 20230615
  2. CARBIDOPA\LEVODOPA [Suspect]
     Active Substance: CARBIDOPA\LEVODOPA
     Dosage: DOSE INCREASED
     Route: 050
  3. AZITHROMYCIN [Concomitant]
     Active Substance: AZITHROMYCIN
     Indication: Product used for unknown indication
  4. AZITHROMYCIN [Concomitant]
     Active Substance: AZITHROMYCIN
     Indication: Product used for unknown indication
     Dosage: REDUCED DOSE

REACTIONS (9)
  - Mobility decreased [Unknown]
  - Food intolerance [Unknown]
  - Cognitive disorder [Unknown]
  - Cerebral atrophy [Unknown]
  - Weight decreased [Unknown]
  - On and off phenomenon [Unknown]
  - Resting tremor [Unknown]
  - Muscle rigidity [Unknown]
  - Gait disturbance [Unknown]
